FAERS Safety Report 17102107 (Version 1)
Quarter: 2019Q4

REPORT INFORMATION
  Report Type: Spontaneous
  Country: US (occurrence: US)
  Receive Date: 20191202
  Receipt Date: 20191202
  Transmission Date: 20200122
  Serious: No
  Sender: FDA-Public Use
  Company Number: US-ETHYPHARM-201902459

PATIENT
  Age: 70 Year
  Sex: Male

DRUGS (1)
  1. BUPRENORPHINE. [Suspect]
     Active Substance: BUPRENORPHINE
     Indication: DRUG DEPENDENCE
     Dosage: 4 MG AT 7 AM AND 4 MG AT 7 PM
     Route: 060
     Dates: start: 201908

REACTIONS (9)
  - Diarrhoea [Unknown]
  - Intentional product misuse [Unknown]
  - Depression [Unknown]
  - Hyperhidrosis [Unknown]
  - Headache [Unknown]
  - Stress [Unknown]
  - Product taste abnormal [Unknown]
  - Gastrointestinal disorder [Unknown]
  - Faeces pale [Unknown]
